FAERS Safety Report 4286951-X (Version None)
Quarter: 2004Q1

REPORT INFORMATION
  Report Type: 
  Country: None (occurrence: None)
  Receive Date: 20040206
  Receipt Date: 20030327
  Transmission Date: 20041129
  Serious: Yes (Other)
  Sender: FDA-Public Use
  Company Number: WAES 0303USA02677M

PATIENT
  Age: 32 Year
  Sex: Female

DRUGS (6)
  1. ADVAIR DISKUS 100/50 [Concomitant]
     Dates: start: 19980101
  2. SINGULAIR [Suspect]
     Route: 048
     Dates: start: 19990101
  3. ZOFRAN [Concomitant]
  4. COMBIVENT [Concomitant]
     Dates: start: 20030101
  5. ZYRTEC [Concomitant]
     Route: 048
     Dates: start: 20030304
  6. BENTYL [Concomitant]
     Dates: start: 19940801

REACTIONS (5)
  - CAESAREAN SECTION [None]
  - DRUG EXPOSURE DURING PREGNANCY [None]
  - ECLAMPSIA [None]
  - PRE-ECLAMPSIA [None]
  - RENAL FAILURE [None]
